FAERS Safety Report 9044975 (Version 1)
Quarter: 2013Q1

REPORT INFORMATION
  Report Type: Report from Study
  Country: US (occurrence: US)
  Receive Date: 20130130
  Receipt Date: 20130130
  Transmission Date: 20140127
  Serious: No
  Sender: FDA-Public Use
  Company Number: US-ABBOTT-12P-163-0958936-00

PATIENT
  Age: 59 Year
  Sex: Male

DRUGS (3)
  1. HUMIRA 40 MG/0.8 ML PEN [Suspect]
     Indication: CROHN^S DISEASE
     Dates: start: 201112, end: 201207
  2. HUMIRA 40 MG/0.8 ML PEN [Suspect]
     Dosage: DOSE INCREASED
     Dates: start: 201207
  3. APRISO [Concomitant]
     Indication: CROHN^S DISEASE
     Dosage: 3 PILLS DAILY

REACTIONS (2)
  - Crohn^s disease [Not Recovered/Not Resolved]
  - Drug ineffective [Not Recovered/Not Resolved]
